FAERS Safety Report 5977581-X (Version None)
Quarter: 2008Q4

REPORT INFORMATION
  Report Type: 
  Country: None (occurrence: None)
  Receive Date: 20081201
  Receipt Date: 20081201
  Transmission Date: 20090506
  Serious: Yes (Other)
  Sender: FDA-Public Use
  Company Number: None

PATIENT
  Age: 77 Year
  Sex: Female
  Weight: 65.7716 kg

DRUGS (2)
  1. LIPITOR [Suspect]
     Indication: BLOOD CHOLESTEROL INCREASED
     Dosage: 10 MG. ONCE A DAY PO
     Route: 048
     Dates: start: 20080615, end: 20080731
  2. LIPITOR [Suspect]
     Indication: LOW DENSITY LIPOPROTEIN INCREASED
     Dosage: 10 MG. ONCE A DAY PO
     Route: 048
     Dates: start: 20080615, end: 20080731

REACTIONS (3)
  - MALAISE [None]
  - MOBILITY DECREASED [None]
  - MYALGIA [None]
